FAERS Safety Report 14454778 (Version 2)
Quarter: 2018Q3

REPORT INFORMATION
  Report Type: Spontaneous
  Country: US (occurrence: US)
  Receive Date: 20180129
  Receipt Date: 20180705
  Transmission Date: 20181010
  Serious: Yes (Hospitalization)
  Sender: FDA-Public Use
  Company Number: US-DSJP-DSU-2010-00292

PATIENT

DRUGS (6)
  1. COREG [Suspect]
     Active Substance: CARVEDILOL
     Indication: CARDIAC DISORDER
     Dosage: QD
     Route: 048
     Dates: start: 2009, end: 200911
  2. LANTUS [Concomitant]
     Active Substance: INSULIN GLARGINE
     Indication: DIABETES MELLITUS
     Dosage: UNKNOWN QHS    EVERY
  3. NOVOLOG [Concomitant]
     Active Substance: INSULIN ASPART
     Indication: DIABETES MELLITUS
     Dosage: TID
  4. BENICAR [Suspect]
     Active Substance: OLMESARTAN MEDOXOMIL
     Indication: HYPERTENSION
     Dosage: 20MG, QD
     Route: 048
     Dates: start: 20081001, end: 20110710
  5. BENICAR [Suspect]
     Active Substance: OLMESARTAN MEDOXOMIL
     Dosage: 40 MG, QD
     Route: 048
     Dates: start: 2009, end: 200911
  6. BENICAR HCT [Suspect]
     Active Substance: HYDROCHLOROTHIAZIDE\OLMESARTAN MEDOXOMIL
     Indication: HYPERTENSION
     Dosage: 40/25MG, QD
     Route: 048
     Dates: start: 20081001, end: 20110710

REACTIONS (7)
  - Pruritus [Recovered/Resolved]
  - Alopecia [Recovering/Resolving]
  - Hepatic steatosis [Unknown]
  - Rash [Recovered/Resolved]
  - Hiatus hernia [Unknown]
  - Cholecystitis acute [Recovered/Resolved]
  - Haemorrhoids [Unknown]

NARRATIVE: CASE EVENT DATE: 20090507
